FAERS Safety Report 10147625 (Version 2)
Quarter: 2014Q2

REPORT INFORMATION
  Report Type: Spontaneous
  Country: US (occurrence: US)
  Receive Date: 20140501
  Receipt Date: 20140501
  Transmission Date: 20141212
  Serious: No
  Sender: FDA-Public Use
  Company Number: US-AMGEN-USASP2014021660

PATIENT
  Age: 43 Year
  Sex: Female
  Weight: 57.14 kg

DRUGS (2)
  1. ENBREL [Suspect]
     Indication: RHEUMATOID ARTHRITIS
     Dosage: 50 MG, QWK
     Route: 058
     Dates: start: 20140117
  2. PLAQUENIL                          /00072602/ [Concomitant]
     Indication: RHEUMATOID ARTHRITIS
     Dosage: 400 MG, QD
     Route: 048
     Dates: start: 20121128

REACTIONS (4)
  - Injection site pain [Recovering/Resolving]
  - Injection site warmth [Not Recovered/Not Resolved]
  - Injection site inflammation [Recovering/Resolving]
  - Injection site pruritus [Not Recovered/Not Resolved]
